FAERS Safety Report 19627143 (Version 2)
Quarter: 2021Q3

REPORT INFORMATION
  Report Type: Spontaneous
  Country: JP (occurrence: JP)
  Receive Date: 20210729
  Receipt Date: 20210819
  Transmission Date: 20211014
  Serious: Yes (Hospitalization, Other)
  Sender: FDA-Public Use
  Company Number: JP-GLAXOSMITHKLINE-JP2021JPN160528

PATIENT
  Age: 23 Year
  Sex: Female

DRUGS (2)
  1. LAMICTAL [Suspect]
     Active Substance: LAMOTRIGINE
     Dosage: UNK
     Route: 048
  2. LAMICTAL [Suspect]
     Active Substance: LAMOTRIGINE
     Indication: PETIT MAL EPILEPSY
     Dosage: 300 MG
     Route: 048

REACTIONS (10)
  - Diplopia [Unknown]
  - Reversible splenial lesion syndrome [Not Recovered/Not Resolved]
  - Dizziness [Unknown]
  - Headache [Unknown]
  - Idiopathic generalised epilepsy [Unknown]
  - Nausea [Unknown]
  - Seizure [Unknown]
  - Hyperventilation [Unknown]
  - Loss of consciousness [Unknown]
  - Drug withdrawal syndrome [Not Recovered/Not Resolved]
